FAERS Safety Report 21956546 (Version 2)
Quarter: 2023Q1

REPORT INFORMATION
  Report Type: Spontaneous
  Country: CN (occurrence: CN)
  Receive Date: 20230206
  Receipt Date: 20230206
  Transmission Date: 20230417
  Serious: Yes (Death, Disabling, Other)
  Sender: FDA-Public Use
  Company Number: CN-009507513-2302CHN001236

PATIENT
  Age: 66 Year
  Sex: Male
  Weight: 65 kg

DRUGS (1)
  1. KEYTRUDA [Suspect]
     Active Substance: PEMBROLIZUMAB
     Indication: Chemotherapy
     Dosage: 200 MG
     Route: 041
     Dates: start: 20220510, end: 20221229

REACTIONS (5)
  - Death [Fatal]
  - Myocardial injury [Not Recovered/Not Resolved]
  - Cardiac failure acute [Unknown]
  - Lung neoplasm malignant [Unknown]
  - Ejection fraction decreased [Unknown]

NARRATIVE: CASE EVENT DATE: 20230117
